FAERS Safety Report 8582993 (Version 7)
Quarter: 2013Q1

REPORT INFORMATION
  Report Type: Spontaneous
  Country: CA (occurrence: CA)
  Receive Date: 20120529
  Receipt Date: 20130321
  Transmission Date: 20140127
  Serious: Yes (Death, Hospitalization, Other)
  Sender: FDA-Public Use
  Company Number: PHHY2012CA026112

PATIENT
  Age: 75 Year
  Sex: Male

DRUGS (13)
  1. SANDOSTATIN LAR [Suspect]
     Indication: NEUROENDOCRINE CARCINOMA METASTATIC
     Dosage: 30 MG, EVERY 4 WEEKS
     Route: 030
     Dates: start: 20101025, end: 20120402
  2. AFINITOR [Suspect]
     Indication: NEUROENDOCRINE CARCINOMA METASTATIC
     Dosage: 10 MG, DAILY
     Route: 048
     Dates: start: 20120507, end: 20120531
  3. AFINITOR [Suspect]
     Dosage: 5 MG, DAILY
     Route: 048
     Dates: start: 20120531
  4. FOLIC ACID [Concomitant]
  5. FUROSEMIDE [Concomitant]
  6. SPIRONOLACTONE [Concomitant]
  7. PANTOPRAZOLE [Concomitant]
  8. ZOPICLONE [Concomitant]
  9. IRON [Concomitant]
  10. PROCYCLIDINE [Concomitant]
  11. PERPHENAZINE [Concomitant]
  12. MULTIVITAMINS [Concomitant]
  13. VITAMIN B1 [Concomitant]

REACTIONS (8)
  - Death [Fatal]
  - Fall [Unknown]
  - Haemorrhage [Unknown]
  - Jaundice cholestatic [Recovered/Resolved]
  - Neoplasm progression [Recovering/Resolving]
  - Malignant neoplasm progression [Recovering/Resolving]
  - Bile duct obstruction [Unknown]
  - Platelet count increased [Unknown]
